FAERS Safety Report 17007714 (Version 1)
Quarter: 2019Q4

REPORT INFORMATION
  Report Type: Spontaneous
  Country: ES (occurrence: ES)
  Receive Date: 20191108
  Receipt Date: 20191108
  Transmission Date: 20200122
  Serious: Yes (Other)
  Sender: FDA-Public Use
  Company Number: ES-BAXTER-2019BAX021942

PATIENT
  Age: 42 Year
  Sex: Male

DRUGS (9)
  1. MESNA. [Concomitant]
     Active Substance: MESNA
     Indication: EMBRYONAL RHABDOMYOSARCOMA
  2. ACTINOMYCIN D [Concomitant]
     Active Substance: DACTINOMYCIN
     Indication: METASTASES TO MENINGES
     Dosage: TOTAL DOSE- 2.7MG
     Route: 065
  3. MESNA. [Concomitant]
     Active Substance: MESNA
     Indication: PROPHYLAXIS
  4. VINCRISTINE [Concomitant]
     Active Substance: VINCRISTINE
     Indication: METASTASES TO MENINGES
     Dosage: TOTAL DOSE OF 2MG
     Route: 065
  5. GENOXAL [Suspect]
     Active Substance: CYCLOPHOSPHAMIDE
     Indication: EMBRYONAL RHABDOMYOSARCOMA
  6. MESNA. [Concomitant]
     Active Substance: MESNA
     Indication: METASTASES TO MENINGES
     Route: 065
  7. GENOXAL [Suspect]
     Active Substance: CYCLOPHOSPHAMIDE
     Indication: METASTASES TO MENINGES
     Dosage: CYCLOPHOSPHAMIDE 5400 MG DAILY FOR 3 CONSECUTIVE DAYS
     Route: 065
  8. VINCRISTINE [Concomitant]
     Active Substance: VINCRISTINE
     Indication: EMBRYONAL RHABDOMYOSARCOMA
  9. ACTINOMYCIN D [Concomitant]
     Active Substance: DACTINOMYCIN
     Indication: EMBRYONAL RHABDOMYOSARCOMA

REACTIONS (3)
  - Left ventricular dysfunction [Recovered/Resolved]
  - Accidental overdose [Unknown]
  - Wrong product administered [Unknown]
